FAERS Safety Report 5874041-1 (Version None)
Quarter: 2008Q3

REPORT INFORMATION
  Report Type: 
  Country: None (occurrence: None)
  Receive Date: 20080829
  Receipt Date: 20080819
  Transmission Date: 20090109
  Serious: Yes (Hospitalization)
  Sender: FDA-Public Use
  Company Number: 100#03#2008-04163

PATIENT
  Age: 51 Year
  Sex: Male

DRUGS (2)
  1. SERTRALINE [Suspect]
     Indication: DEPRESSION
     Dosage: 100 MG ONCE ORAL
     Route: 048
     Dates: start: 20080430
  2. TRAMADOL HCL [Suspect]
     Indication: PAIN
     Dosage: 100 MG FOUR TIMES DAILY
     Dates: start: 20080430, end: 20080805

REACTIONS (6)
  - BLOOD ALKALINE PHOSPHATASE INCREASED [None]
  - CONVULSION [None]
  - HAEMOGLOBIN DECREASED [None]
  - INCONTINENCE [None]
  - NEUTROPHIL COUNT INCREASED [None]
  - WHITE BLOOD CELL COUNT INCREASED [None]
